FAERS Safety Report 5623108-1 (Version None)
Quarter: 2008Q1

REPORT INFORMATION
  Report Type: 
  Country: None (occurrence: None)
  Receive Date: 20080212
  Receipt Date: 20080205
  Transmission Date: 20080703
  Serious: Yes (Disabling)
  Sender: FDA-Public Use
  Company Number: A0694764A

PATIENT
  Age: 68 Year
  Sex: Male
  Weight: 125.9 kg

DRUGS (5)
  1. ADVAIR DISKUS 100/50 [Suspect]
     Indication: ASTHMA
     Dosage: 1PUFF TWICE PER DAY
     Route: 055
     Dates: start: 20060101, end: 20071101
  2. SPIRIVA [Concomitant]
     Indication: ASTHMA
     Dosage: 1CAP PER DAY
     Route: 055
     Dates: end: 20071101
  3. SINGULAIR [Concomitant]
     Indication: ASTHMA
     Dosage: 10MG PER DAY
     Route: 048
  4. ALBUTEROL [Concomitant]
     Indication: ASTHMA
     Dosage: 2PUFF SEE DOSAGE TEXT
     Route: 055
  5. HYTRIN [Concomitant]
     Indication: HYPERTENSION
     Dosage: 5MG AT NIGHT
     Route: 048
     Dates: start: 20070701, end: 20071201

REACTIONS (2)
  - RETINAL DISORDER [None]
  - VISUAL ACUITY REDUCED [None]
